FAERS Safety Report 13803150 (Version 2)
Quarter: 2017Q3

REPORT INFORMATION
  Report Type: Report from Study
  Country: NL (occurrence: NL)
  Receive Date: 20170728
  Receipt Date: 20170804
  Transmission Date: 20171127
  Serious: Yes (Hospitalization)
  Sender: FDA-Public Use
  Company Number: NL-IPSEN BIOPHARMACEUTICALS, INC.-2017-07950

PATIENT
  Age: 77 Year
  Sex: Female

DRUGS (2)
  1. SOMATULINE AUTOSOLUTION 60MG [Suspect]
     Active Substance: LANREOTIDE ACETATE
     Dosage: 60 MG
     Route: 058
     Dates: start: 20170731
  2. SOMATULINE AUTOSOLUTION 60MG [Suspect]
     Active Substance: LANREOTIDE ACETATE
     Indication: PRODUCT USED FOR UNKNOWN INDICATION
     Dosage: 60 MG
     Route: 058
     Dates: start: 20080627, end: 201707

REACTIONS (3)
  - Diarrhoea [Unknown]
  - Constipation [Recovering/Resolving]
  - Functional gastrointestinal disorder [Recovering/Resolving]

NARRATIVE: CASE EVENT DATE: 201707
